FAERS Safety Report 4369108-3 (Version None)
Quarter: 2004Q2

REPORT INFORMATION
  Report Type: 
  Country: None (occurrence: None)
  Receive Date: 20040528
  Receipt Date: 20040519
  Transmission Date: 20050107
  Serious: Yes (Life-Threatening)
  Sender: FDA-Public Use
  Company Number: 2004214499JP

PATIENT
  Age: 65 Year
  Sex: Male

DRUGS (5)
  1. CLINDAMYCIN HCL [Suspect]
     Indication: POSTOPERATIVE INFECTION
     Dosage: 1200 MG, DAILY, IV
     Route: 042
     Dates: start: 20040105, end: 20040109
  2. CLINDAMYCIN HCL [Suspect]
     Indication: POSTOPERATIVE INFECTION
     Dosage: 1200 MG, DAILY, IV
     Route: 042
     Dates: start: 20040111, end: 20040113
  3. DIFLUCAN [Suspect]
     Indication: POSTOPERATIVE INFECTION
     Dosage: 200 MG, DAILY, IV
     Route: 042
     Dates: start: 20040104, end: 20040105
  4. BISOLVON(BROMHEXINE HYDROCHLORIDE) [Suspect]
     Dosage: IV
     Route: 042
  5. VOLTAREN [Suspect]
     Dosage: ORAL
     Route: 048

REACTIONS (1)
  - TOXIC EPIDERMAL NECROLYSIS [None]
